FAERS Safety Report 18516205 (Version 1)
Quarter: 2020Q4

REPORT INFORMATION
  Report Type: Spontaneous
  Country: GB (occurrence: GB)
  Receive Date: 20201118
  Receipt Date: 20201118
  Transmission Date: 20210114
  Serious: Yes (Other)
  Sender: FDA-Public Use
  Company Number: GB-PFIZER INC-2020452540

PATIENT
  Age: 24 Year
  Sex: Female
  Weight: 50.8 kg

DRUGS (1)
  1. SAYANA PRESS [Suspect]
     Active Substance: MEDROXYPROGESTERONE\MEDROXYPROGESTERONE ACETATE
     Dosage: UNK
     Dates: start: 20170406, end: 20191227

REACTIONS (1)
  - Alopecia [Not Recovered/Not Resolved]
